FAERS Safety Report 8340579 (Version 2)
Quarter: 2013Q4

REPORT INFORMATION
  Report Type: Spontaneous
  Country: US (occurrence: US)
  Receive Date: 20120117
  Receipt Date: 20131206
  Transmission Date: 20140711
  Serious: Yes (Hospitalization, Other)
  Sender: FDA-Public Use
  Company Number: US-ROCHE-793590

PATIENT
  Age: 34 Year
  Sex: Female
  Weight: 63.56 kg

DRUGS (2)
  1. ACCUTANE [Suspect]
     Indication: PRODUCT USED FOR UNKNOWN INDICATION
     Route: 065
     Dates: start: 1982, end: 1983
  2. ACCUTANE [Suspect]
     Route: 065

REACTIONS (13)
  - Anal fistula [Unknown]
  - Crohn^s disease [Unknown]
  - Inflammatory bowel disease [Unknown]
  - Arthritis [Unknown]
  - Irritable bowel syndrome [Unknown]
  - Depression [Unknown]
  - Panic attack [Unknown]
  - Gastrointestinal ulcer [Unknown]
  - Blood cholesterol increased [Unknown]
  - Hepatic enzyme increased [Unknown]
  - Acute febrile neutrophilic dermatosis [Unknown]
  - Gallbladder disorder [Unknown]
  - Alopecia [Unknown]
